FAERS Safety Report 23503951 (Version 2)
Quarter: 2024Q1

REPORT INFORMATION
  Report Type: Spontaneous
  Country: JP (occurrence: JP)
  Receive Date: 20240209
  Receipt Date: 20240312
  Transmission Date: 20240410
  Serious: Yes (Other)
  Sender: FDA-Public Use
  Company Number: JP-NOVOPROD-1170744

PATIENT
  Age: 82 Year
  Sex: Male
  Weight: 49.9 kg

DRUGS (3)
  1. INSULIN GLARGINE [Suspect]
     Active Substance: INSULIN GLARGINE
     Indication: Type 2 diabetes mellitus
     Dosage: 10 IU, QD (10-0-0)
     Route: 058
  2. NOVORAPID [Suspect]
     Active Substance: INSULIN ASPART
     Indication: Type 2 diabetes mellitus
     Dosage: 9 IU, QD(3-3-3IU)
     Route: 058
  3. NOVORAPID [Suspect]
     Active Substance: INSULIN ASPART
     Dosage: 11 IU, QD(3-5-3 IU)
     Route: 058

REACTIONS (3)
  - Cerebral infarction [Recovered/Resolved]
  - Hypoglycaemia [Recovered/Resolved]
  - Hyperglycaemia [Unknown]

NARRATIVE: CASE EVENT DATE: 20230706
